FAERS Safety Report 9267108 (Version 1)
Quarter: 2013Q2

REPORT INFORMATION
  Report Type: Spontaneous
  Country: KR (occurrence: KR)
  Receive Date: 20130502
  Receipt Date: 20130502
  Transmission Date: 20140414
  Serious: Yes (Other)
  Sender: FDA-Public Use
  Company Number: KR-JNJFOC-20130415019

PATIENT
  Age: 7 Month
  Sex: Female

DRUGS (2)
  1. TYLENOL SUSPENSION LIQUID [Suspect]
     Indication: PYREXIA
     Route: 048
     Dates: start: 20130414
  2. TYLENOL SUSPENSION LIQUID [Suspect]
     Indication: PYREXIA
     Route: 048

REACTIONS (2)
  - Dehydration [Unknown]
  - Hepatic enzyme increased [Unknown]
